FAERS Safety Report 19887200 (Version 1)
Quarter: 2021Q3

REPORT INFORMATION
  Report Type: Report from Study
  Country: FR (occurrence: FR)
  Receive Date: 20210927
  Receipt Date: 20210927
  Transmission Date: 20211014
  Serious: Yes (Other)
  Sender: FDA-Public Use
  Company Number: FR-AMGEN-FRANI2021145032

PATIENT
  Age: 67 Year
  Sex: Female

DRUGS (2)
  1. AMG 510 [Suspect]
     Active Substance: AMG-510
     Indication: NON-SMALL CELL LUNG CANCER
     Dosage: 960 MILLIGRAM, QD
     Route: 048
     Dates: start: 20210812
  2. AMG 510 [Suspect]
     Active Substance: AMG-510
     Indication: K-RAS GENE MUTATION

REACTIONS (2)
  - Ventricular tachyarrhythmia [Recovered/Resolved]
  - Ventricular extrasystoles [Recovered/Resolved]

NARRATIVE: CASE EVENT DATE: 20210909
